FAERS Safety Report 5895860-1 (Version None)
Quarter: 2008Q3

REPORT INFORMATION
  Report Type: 
  Country: None (occurrence: None)
  Receive Date: 20080924
  Receipt Date: 20080919
  Transmission Date: 20090109
  Serious: Yes (Other)
  Sender: FDA-Public Use
  Company Number: US-JNJCH-2008024459

PATIENT
  Age: 70 Year
  Sex: Female
  Weight: 63.1 kg

DRUGS (1)
  1. ZYRTEC [Suspect]
     Indication: HYPERSENSITIVITY
     Dosage: TEXT:1 PILL DAILY
     Route: 048

REACTIONS (4)
  - FEELING ABNORMAL [None]
  - GAIT DISTURBANCE [None]
  - IMPAIRED DRIVING ABILITY [None]
  - WRONG DRUG ADMINISTERED [None]
